FAERS Safety Report 4526698-5 (Version None)
Quarter: 2004Q4

REPORT INFORMATION
  Report Type: 
  Country: None (occurrence: None)
  Receive Date: 20041213
  Receipt Date: 20041117
  Transmission Date: 20050328
  Serious: Yes (Hospitalization)
  Sender: FDA-Public Use
  Company Number: 2004231236US

PATIENT
  Age: 82 Year
  Sex: Male
  Weight: 81.6475 kg

DRUGS (15)
  1. BEXTRA [Suspect]
     Indication: ARTHRITIS
     Dosage: 10 MG (QD), ORAL
     Route: 048
     Dates: start: 20040601, end: 20040615
  2. ASPIRIN [Suspect]
     Indication: ILL-DEFINED DISORDER
     Dosage: 10 MG (QD), ORAL
     Route: 048
     Dates: end: 20040616
  3. NAPROXEN SODIUM [Concomitant]
     Indication: ILL-DEFINED DISORDER
     Dosage: ORAL
     Route: 048
     Dates: end: 20040616
  4. ATORVASTATIN (ATORVASTATIN) [Concomitant]
  5. DIGOXIN [Concomitant]
  6. LISINOPRIL [Concomitant]
  7. DILTIAZEM [Concomitant]
  8. GLIPIZIDE [Concomitant]
  9. METFORMIN (METFORMIN) [Concomitant]
  10. ROSIGLITAZONE MALEATE [Concomitant]
  11. MULTIVITAMINS (ERGOCALCIFEROL/ASCORBIC ACID, FOLIC ACID, THIAMINE HYDR [Concomitant]
  12. TOLTERODINE TARTRATE [Concomitant]
  13. FUROSEMIDE [Concomitant]
  14. GLUCOSAMINE W/CHONDROITIN SULFATES (ASCORBIC ACID, CHONDROITIN SULFATE [Concomitant]
  15. CALCIUM (CALCIUM) [Concomitant]

REACTIONS (7)
  - ANGIOPATHY [None]
  - BLOOD URINE PRESENT [None]
  - CATHETER RELATED COMPLICATION [None]
  - EXCESSIVE EXERCISE [None]
  - FEELING ABNORMAL [None]
  - HAEMORRHAGE [None]
  - THROMBOSIS [None]
